FAERS Safety Report 6735945-0 (Version None)
Quarter: 2010Q2

REPORT INFORMATION
  Report Type: 
  Country: None (occurrence: None)
  Receive Date: 20100521
  Receipt Date: 20100514
  Transmission Date: 20101027
  Serious: Yes (Hospitalization)
  Sender: FDA-Public Use
  Company Number: B0652879A

PATIENT
  Sex: Female

DRUGS (3)
  1. IMIGRANE [Suspect]
     Indication: MIGRAINE
     Route: 045
     Dates: start: 20090101, end: 20091201
  2. BIPROFENID [Concomitant]
     Indication: MIGRAINE
     Route: 065
  3. DOLIPRANE [Concomitant]
     Indication: MIGRAINE
     Route: 065

REACTIONS (2)
  - DRUG DEPENDENCE [None]
  - HEADACHE [None]
